FAERS Safety Report 4656346-5 (Version None)
Quarter: 2005Q2

REPORT INFORMATION
  Report Type: 
  Country: None (occurrence: None)
  Receive Date: 20050509
  Receipt Date: 20050307
  Transmission Date: 20051028
  Serious: Yes (Hospitalization)
  Sender: FDA-Public Use
  Company Number: DE-BOEHRINGER INGELHEIM PHARMACEUTICALS, INC.-2005-DE-00924DE

PATIENT
  Sex: Male

DRUGS (15)
  1. ALNA [Suspect]
     Route: 048
  2. IMUREK [Concomitant]
  3. NOVODIGAL [Concomitant]
  4. AQUAPHOR [Concomitant]
     Route: 048
  5. MINIASAL [Concomitant]
  6. NEXIUM [Concomitant]
  7. DECORTIN [Concomitant]
  8. PENTASA GRANULATE [Concomitant]
  9. ACTONEL [Concomitant]
     Dosage: 35 MG X WEEKLY
  10. TROMCARDIN [Concomitant]
  11. BELOC-ZOK [Concomitant]
  12. NOOTROP [Concomitant]
  13. CURAZINK [Concomitant]
  14. FOLSAEURE STADA [Concomitant]
  15. ASLAN HERRENKAPSELN [Concomitant]
     Route: 048

REACTIONS (3)
  - DRUG HYPERSENSITIVITY [None]
  - OEDEMA PERIPHERAL [None]
  - SWELLING FACE [None]
